FAERS Safety Report 6229976-7 (Version None)
Quarter: 2009Q2

REPORT INFORMATION
  Report Type: 
  Country: None (occurrence: None)
  Receive Date: 20090615
  Receipt Date: 20090529
  Transmission Date: 20091009
  Serious: Yes (Life-Threatening, Other)
  Sender: FDA-Public Use
  Company Number: US-AMGEN-US093640

PATIENT
  Sex: Female

DRUGS (4)
  1. ENBREL [Suspect]
     Indication: RHEUMATOID ARTHRITIS
     Route: 058
     Dates: start: 20040721, end: 20040909
  2. METHOTREXATE [Concomitant]
  3. PREDNISONE [Concomitant]
     Route: 048
  4. NAPROSYN [Concomitant]

REACTIONS (1)
  - BREAST CANCER [None]
